FAERS Safety Report 17068429 (Version 14)
Quarter: 2023Q1

REPORT INFORMATION
  Report Type: Spontaneous
  Country: GB (occurrence: GB)
  Receive Date: 20191123
  Receipt Date: 20230120
  Transmission Date: 20230418
  Serious: Yes (Other)
  Sender: FDA-Public Use
  Company Number: None

PATIENT
  Age: 52 Year
  Sex: Male

DRUGS (25)
  1. ESOMEPRAZOLE [Suspect]
     Active Substance: ESOMEPRAZOLE
     Indication: Oesophagitis
     Route: 048
  2. ETORICOXIB [Suspect]
     Active Substance: ETORICOXIB
     Indication: Product used for unknown indication
     Dosage: TABLET
     Route: 048
  3. LANSOPRAZOLE [Suspect]
     Active Substance: LANSOPRAZOLE
     Indication: Barrett^s oesophagus
  4. ACETAMINOPHEN\CODEINE PHOSPHATE [Suspect]
     Active Substance: ACETAMINOPHEN\CODEINE PHOSPHATE
     Indication: Product used for unknown indication
     Dosage: (CODEINE PHOSPHATE 30 MG/ PARACETAMOL 500 MG), EFFERVESCENT TABLET
     Route: 048
  5. RANITIDINE [Suspect]
     Active Substance: RANITIDINE
     Indication: Oesophagitis
  6. DOMPERIDONE [Suspect]
     Active Substance: DOMPERIDONE
     Indication: Barrett^s oesophagus
     Dosage: UNK
     Route: 065
  7. ARCOXIA [Suspect]
     Active Substance: ETORICOXIB
     Indication: Product used for unknown indication
     Route: 048
  8. COCODAMOL [Suspect]
     Active Substance: ACETAMINOPHEN\CODEINE PHOSPHATE
     Indication: Product used for unknown indication
     Dosage: CODEINE PHOSPHATE 30 MG/ PARACETAMOL 500 MG
     Route: 048
  9. SECUKINUMAB [Suspect]
     Active Substance: SECUKINUMAB
     Indication: Ankylosing spondylitis
     Dosage: 300 MG
     Route: 058
     Dates: start: 20211011
  10. SENOKOT [Concomitant]
     Active Substance: SENNOSIDES
  11. VITAMIN D [Concomitant]
     Active Substance: VITAMIN D NOS
  12. ATORVASTATIN [Concomitant]
     Active Substance: ATORVASTATIN
     Indication: Barrett^s oesophagus
     Dosage: UNK
     Route: 065
  13. ASPIRIN [Concomitant]
     Active Substance: ASPIRIN
     Indication: Oesophagitis
     Dosage: UNK
  14. TRAMADOL [Concomitant]
     Active Substance: TRAMADOL
     Indication: Oesophagitis
     Dosage: UNK
  15. PENICILLIN V [Concomitant]
     Active Substance: PENICILLIN V
     Indication: Oesophagitis
     Route: 065
  16. ARIPIPRAZOLE [Concomitant]
     Active Substance: ARIPIPRAZOLE
     Indication: Barrett^s oesophagus
     Dosage: UNK
     Route: 065
  17. ACYCLOVIR [Concomitant]
     Active Substance: ACYCLOVIR
     Indication: Product used for unknown indication
  18. ESOMEPRAZOLE [Suspect]
     Active Substance: ESOMEPRAZOLE
     Indication: Barrett^s oesophagus
     Dosage: UNK
     Route: 048
  19. RANITIDINE [Suspect]
     Active Substance: RANITIDINE
     Indication: Barrett^s oesophagus
     Dosage: UNK, UNK
  20. ESOMEPRAZOLE [Suspect]
     Active Substance: ESOMEPRAZOLE
     Indication: Barrett^s oesophagus
     Dosage: UNK, UNK
  21. ETORICOXIB [Suspect]
     Active Substance: ETORICOXIB
     Route: 048
  22. ACETAMINOPHEN\CODEINE PHOSPHATE [Suspect]
     Active Substance: ACETAMINOPHEN\CODEINE PHOSPHATE
     Dosage: (CODEINE PHOSPHATE 30 MG/ PARACETAMOL 500 MG)
     Route: 048
  23. COCODAMOL [Suspect]
     Active Substance: ACETAMINOPHEN\CODEINE PHOSPHATE
     Indication: Product used for unknown indication
     Dosage: CODEINE PHOSPHATE 30 MG/ PARACETAMOL 500 MG
     Route: 048
  24. SECUKINUMAB [Suspect]
     Active Substance: SECUKINUMAB
     Indication: Ankylosing spondylitis
     Dosage: 150 MG
     Route: 058
     Dates: start: 202109
  25. SECUKINUMAB [Suspect]
     Active Substance: SECUKINUMAB
     Indication: Ankylosing spondylitis
     Route: 058
     Dates: start: 20210111

REACTIONS (11)
  - Arthralgia [Not Recovered/Not Resolved]
  - Abdominal distension [Unknown]
  - Oropharyngeal discomfort [Unknown]
  - Eructation [Unknown]
  - Regurgitation [Unknown]
  - Vitamin B12 deficiency [Unknown]
  - Acne [Not Recovered/Not Resolved]
  - Condition aggravated [Unknown]
  - Dyspepsia [Unknown]
  - Barrett^s oesophagus [Unknown]
  - Neck pain [Unknown]

NARRATIVE: CASE EVENT DATE: 20211201
